FAERS Safety Report 4414974-6 (Version None)
Quarter: 2004Q3

REPORT INFORMATION
  Report Type: 
  Country: None (occurrence: None)
  Receive Date: 20040803
  Receipt Date: 20040803
  Transmission Date: 20050211
  Serious: Yes (Death)
  Sender: FDA-Public Use
  Company Number: None

PATIENT
  Age: 28 Year
  Sex: Male
  Weight: 82 kg

DRUGS (5)
  1. PROPOFOL [Suspect]
     Indication: SEDATION
     Dosage: 3-6MGKGHR  HOURLY  INTRAVENOUS
     Route: 042
     Dates: start: 20040624, end: 20040628
  2. NOREPINEPHRINE INFUSION [Concomitant]
  3. PHENYLEPHRINE INFUSION [Concomitant]
  4. SODIUM BICARBONATE INFUSION [Concomitant]
  5. VASOPRESSIN INFUSION [Concomitant]

REACTIONS (5)
  - BLOOD CREATININE INCREASED [None]
  - BLOOD PH DECREASED [None]
  - MEAN ARTERIAL PRESSURE DECREASED [None]
  - MYOGLOBIN BLOOD INCREASED [None]
  - PROPOFOL INFUSION SYNDROME [None]
